FAERS Safety Report 23499620 (Version 1)
Quarter: 2024Q1

REPORT INFORMATION
  Report Type: Other
  Country: NZ (occurrence: NZ)
  Receive Date: 20240208
  Receipt Date: 20240208
  Transmission Date: 20240410
  Serious: Yes (Other)
  Sender: FDA-Public Use
  Company Number: NZ-TASMAN PHARMA, INC.-2024TSM00088

PATIENT
  Age: 50 Year
  Sex: Male

DRUGS (5)
  1. CLOZAPINE [Suspect]
     Active Substance: CLOZAPINE
  2. OMEPRAZOLE [Concomitant]
     Active Substance: OMEPRAZOLE
  3. DEXAMETHASONE [Concomitant]
     Active Substance: DEXAMETHASONE
  4. AMIODARONE [Concomitant]
     Active Substance: AMIODARONE
  5. PAROXETINE [Concomitant]
     Active Substance: PAROXETINE

REACTIONS (5)
  - Metastasis [Unknown]
  - Haemoglobin decreased [Unknown]
  - Red cell distribution width increased [Unknown]
  - Monocytosis [Unknown]
  - Neutrophilia [Unknown]
